FAERS Safety Report 7364821-8 (Version None)
Quarter: 2011Q1

REPORT INFORMATION
  Report Type: 
  Country: None (occurrence: None)
  Receive Date: 20110321
  Receipt Date: 20110311
  Transmission Date: 20110831
  Serious: Yes (Other)
  Sender: FDA-Public Use
  Company Number: US-CEPHALON-2011001067

PATIENT
  Sex: Female
  Weight: 68 kg

DRUGS (9)
  1. LYRICA [Concomitant]
     Indication: MIGRAINE
     Dates: start: 20060101
  2. VERAPAMIL EXTENDED-RELEASE [Concomitant]
     Indication: BLOOD PRESSURE
     Dates: start: 20060101
  3. VERAPAMIL EXTENDED-RELEASE [Concomitant]
     Indication: MIGRAINE
  4. EFFEXOR XR [Concomitant]
     Indication: STRESS
     Dates: start: 20030101
  5. NUVIGIL [Suspect]
     Indication: HYPERSOMNIA
     Route: 048
     Dates: start: 20100701, end: 20110227
  6. RELPAX [Concomitant]
     Indication: HEADACHE
     Dates: start: 20070101
  7. ATENOLOL [Concomitant]
     Indication: BLOOD PRESSURE
     Dates: start: 20081212
  8. EFFEXOR XR [Concomitant]
     Indication: ANXIETY
  9. LIBRIUM [Concomitant]
     Indication: STRESS
     Dates: start: 20081201

REACTIONS (17)
  - RASH [None]
  - FEELING HOT [None]
  - SKIN MASS [None]
  - BLOOD PRESSURE FLUCTUATION [None]
  - BRONCHITIS [None]
  - DRUG WITHDRAWAL SYNDROME [None]
  - FEELING JITTERY [None]
  - BLOOD PRESSURE INCREASED [None]
  - STAPHYLOCOCCAL INFECTION [None]
  - RASH PRURITIC [None]
  - DRUG TOLERANCE [None]
  - LIP DISORDER [None]
  - HYPOAESTHESIA FACIAL [None]
  - HYPERHIDROSIS [None]
  - FEELING ABNORMAL [None]
  - HEADACHE [None]
  - NAUSEA [None]
